FAERS Safety Report 6265489-4 (Version None)
Quarter: 2009Q3

REPORT INFORMATION
  Report Type: 
  Country: None (occurrence: None)
  Receive Date: 20090713
  Receipt Date: 20090629
  Transmission Date: 20100115
  Serious: Yes (Other)
  Sender: FDA-Public Use
  Company Number: PHHY2009KR24840

PATIENT
  Sex: Male

DRUGS (4)
  1. CLOZAPINE [Suspect]
     Dosage: 200 MG/DAY
     Dates: start: 20090115
  2. ARIPIPRAZOLE [Concomitant]
     Dosage: 30 MG, UNK
  3. QUETIAPINE FUMARATE [Concomitant]
     Dosage: 400 MG, UNK
  4. LAMOTRIGINE [Concomitant]
     Dosage: 100 MG, UNK

REACTIONS (12)
  - BLOOD CREATINE PHOSPHOKINASE INCREASED [None]
  - BLOOD CREATINE PHOSPHOKINASE MB INCREASED [None]
  - BURNING SENSATION [None]
  - CARDIOMEGALY [None]
  - ELECTROCARDIOGRAM T WAVE AMPLITUDE INCREASED [None]
  - PERICARDIAL EFFUSION [None]
  - PERICARDITIS [None]
  - PLEURAL EFFUSION [None]
  - PULMONARY CONGESTION [None]
  - TACHYCARDIA [None]
  - TROPONIN INCREASED [None]
  - VENTRICULAR HYPERTROPHY [None]
